FAERS Safety Report 23381207 (Version 1)
Quarter: 2024Q1

REPORT INFORMATION
  Report Type: Spontaneous
  Country: CN (occurrence: CN)
  Receive Date: 20240109
  Receipt Date: 20240109
  Transmission Date: 20240410
  Serious: Yes (Hospitalization)
  Sender: FDA-Public Use
  Company Number: None

PATIENT
  Age: 66 Year
  Sex: Female
  Weight: 63 kg

DRUGS (10)
  1. CYCLOPHOSPHAMIDE [Suspect]
     Active Substance: CYCLOPHOSPHAMIDE
     Indication: Peripheral T-cell lymphoma unspecified
     Dosage: 1 G, ONE TIME IN ONE DAY, DILUTED WITH 50 ML OF 0.9% SODIUM CHLORIDE, D1, ROUTE: INTRA-PUMP INJECTIO
     Route: 050
     Dates: start: 20231207, end: 20231207
  2. CYCLOPHOSPHAMIDE [Suspect]
     Active Substance: CYCLOPHOSPHAMIDE
     Indication: Drug therapy
  3. SODIUM CHLORIDE [Suspect]
     Active Substance: SODIUM CHLORIDE
     Indication: Medication dilution
     Dosage: (0.9%) 50ML, ONE TIME IN ONE DAY, USED TO DILUTE 1G OF CYCLOPHOSPHAMIDE,D1, ROUTE: INTRA-PUMP INJECT
     Route: 050
     Dates: start: 20231207, end: 20231207
  4. SODIUM CHLORIDE [Suspect]
     Active Substance: SODIUM CHLORIDE
     Dosage: (0.9%) 30ML, ONE TIME IN ONE DAY, USED TO DILUTE 2MG OF VINCRISTINE SULFATE, D1, ROUTE: INTRA-PUMP I
     Route: 050
     Dates: start: 20231207, end: 20231207
  5. SODIUM CHLORIDE [Suspect]
     Active Substance: SODIUM CHLORIDE
     Dosage: (0.9%) 500ML, USED TO DILUTE 0.13G OF ETOPOSIDE, D1-3
     Route: 065
     Dates: start: 20231207, end: 20231209
  6. DEXTROSE [Suspect]
     Active Substance: DEXTROSE\DEXTROSE MONOHYDRATE
     Indication: Medication dilution
     Dosage: (5%) 100ML, USED TO DILUTE 20MG OF DOXORUBICIN HYDROCHLORIDE LIPOSOME
     Route: 065
     Dates: start: 20231207
  7. VINCRISTINE SULFATE [Suspect]
     Active Substance: VINCRISTINE SULFATE
     Indication: Peripheral T-cell lymphoma unspecified
     Dosage: 2 MG, ONE TIME IN ONE DAY, DILUTED WITH 30ML OF 0.9% SODIUM CHLORIDE, D1, ROUTE: INTRA-PUMP INJECTIO
     Route: 050
     Dates: start: 20231207, end: 20231207
  8. VINCRISTINE SULFATE [Suspect]
     Active Substance: VINCRISTINE SULFATE
     Indication: Drug therapy
  9. DOXORUBICIN HYDROCHLORIDE [Suspect]
     Active Substance: DOXORUBICIN HYDROCHLORIDE
     Indication: Peripheral T-cell lymphoma unspecified
     Dosage: 20 MG, DILUTED WITH 100ML OF 5% GLUCOSE
     Route: 065
     Dates: start: 20231207
  10. ETOPOSIDE [Suspect]
     Active Substance: ETOPOSIDE
     Indication: Peripheral T-cell lymphoma unspecified
     Dosage: 0.13 G, DILUTED WITH 500 ML OF 0.9% SODIUM CHLORIDE, D1-3
     Route: 065
     Dates: start: 20231207, end: 20231209

REACTIONS (2)
  - White blood cell count decreased [Recovered/Resolved]
  - Granulocyte count decreased [Recovered/Resolved]

NARRATIVE: CASE EVENT DATE: 20231217
